FAERS Safety Report 18107711 (Version 1)
Quarter: 2020Q3

REPORT INFORMATION
  Report Type: Spontaneous
  Country: GB (occurrence: GB)
  Receive Date: 20200804
  Receipt Date: 20200804
  Transmission Date: 20201103
  Serious: Yes (Life-Threatening, Hospitalization, Other)
  Sender: FDA-Public Use
  Company Number: GB-ACCORD-193930

PATIENT
  Age: 33 Year
  Sex: Female
  Weight: 49 kg

DRUGS (2)
  1. CLOZAPINE. [Suspect]
     Active Substance: CLOZAPINE
     Indication: SCHIZOPHRENIA
     Dosage: 175MG EACH MORNING, 250G EACH NIGHT
     Route: 048
     Dates: start: 20200201
  2. HYOSCINE [Concomitant]
     Active Substance: SCOPOLAMINE

REACTIONS (3)
  - Peripheral swelling [Not Recovered/Not Resolved]
  - Somnolence [Unknown]
  - Venous thrombosis limb [Not Recovered/Not Resolved]

NARRATIVE: CASE EVENT DATE: 20200715
